FAERS Safety Report 4282433-X (Version None)
Quarter: 2004Q1

REPORT INFORMATION
  Report Type: 
  Country: None (occurrence: None)
  Receive Date: 20040129
  Receipt Date: 20040120
  Transmission Date: 20041129
  Serious: No
  Sender: FDA-Public Use
  Company Number: 2004UW01007

PATIENT
  Age: 83 Year
  Sex: Male
  Weight: 68.0396 kg

DRUGS (4)
  1. TOPROL-XL [Suspect]
     Indication: ANGINA PECTORIS
  2. NORVASC [Concomitant]
  3. NITRO PATCH [Concomitant]
  4. ASPIRIN [Concomitant]

REACTIONS (5)
  - ANGINA PECTORIS [None]
  - EXTRASYSTOLES [None]
  - FEELING JITTERY [None]
  - TACHYCARDIA [None]
  - VASOSPASM [None]
